FAERS Safety Report 11897775 (Version 1)
Quarter: 2016Q1

REPORT INFORMATION
  Report Type: Spontaneous
  Country: GB (occurrence: GB)
  Receive Date: 20160108
  Receipt Date: 20160108
  Transmission Date: 20160526
  Serious: Yes (Life-Threatening, Other)
  Sender: FDA-Public Use
  Company Number: GB-009507513-1601GBR001708

PATIENT
  Sex: Female

DRUGS (1)
  1. NEXPLANON [Suspect]
     Active Substance: ETONOGESTREL
     Indication: CONTRACEPTION
     Dosage: UNK
     Dates: start: 20131206

REACTIONS (4)
  - Placenta praevia [Unknown]
  - Device failure [Unknown]
  - Pregnancy with implant contraceptive [Unknown]
  - Coital bleeding [Unknown]

NARRATIVE: CASE EVENT DATE: 201511
